FAERS Safety Report 7182850-4 (Version None)
Quarter: 2010Q4

REPORT INFORMATION
  Report Type: 
  Country: None (occurrence: None)
  Receive Date: 20101222
  Receipt Date: 20101214
  Transmission Date: 20110411
  Serious: Yes (Hospitalization)
  Sender: FDA-Public Use
  Company Number: US-BIOGENIDEC-2010BI042085

PATIENT
  Age: 63 Year
  Sex: Female

DRUGS (2)
  1. AVONEX [Suspect]
     Indication: MULTIPLE SCLEROSIS
     Route: 030
     Dates: start: 20050729
  2. AVONEX [Suspect]
     Route: 030
     Dates: start: 19970718, end: 20050103

REACTIONS (1)
  - MYOCARDIAL INFARCTION [None]
